FAERS Safety Report 4933239-7 (Version None)
Quarter: 2006Q1

REPORT INFORMATION
  Report Type: 
  Country: None (occurrence: None)
  Receive Date: 20060306
  Receipt Date: 20050113
  Transmission Date: 20060701
  Serious: Yes (Hospitalization, Other)
  Sender: FDA-Public Use
  Company Number: US-MERCK-0501USA01772

PATIENT
  Age: 38 Year
  Sex: Male

DRUGS (1)
  1. VIOXX [Suspect]
     Route: 048
     Dates: start: 20010101, end: 20020101

REACTIONS (8)
  - CHEST PAIN [None]
  - COUGH [None]
  - DIZZINESS [None]
  - HYPERHIDROSIS [None]
  - HYPERLIPIDAEMIA [None]
  - LOSS OF CONSCIOUSNESS [None]
  - MYOCARDIAL INFARCTION [None]
  - SYNCOPE [None]
